FAERS Safety Report 4340663-2 (Version None)
Quarter: 2004Q2

REPORT INFORMATION
  Report Type: 
  Country: None (occurrence: None)
  Receive Date: 20040419
  Receipt Date: 20040209
  Transmission Date: 20050107
  Serious: Yes (Hospitalization)
  Sender: FDA-Public Use
  Company Number: 200410601FR

PATIENT
  Age: 61 Year
  Sex: Male

DRUGS (4)
  1. TAXOTERE [Suspect]
     Indication: CARCINOMA
     Route: 042
     Dates: start: 20040126, end: 20040126
  2. CISPLATIN [Suspect]
     Indication: CARCINOMA
     Route: 042
     Dates: start: 20040126, end: 20040126
  3. FLUOROURACIL [Suspect]
     Indication: CARCINOMA
     Route: 042
     Dates: start: 20040126, end: 20040130
  4. MEDIATENSYL [Concomitant]

REACTIONS (10)
  - FEBRILE NEUTROPENIA [None]
  - HAEMOGLOBIN DECREASED [None]
  - HYPOKALAEMIA [None]
  - HYPOPROTEINAEMIA [None]
  - MUCOSAL INFLAMMATION [None]
  - OEDEMA [None]
  - PLATELET COUNT DECREASED [None]
  - PROTEIN URINE [None]
  - RASH [None]
  - WHITE BLOOD CELL COUNT DECREASED [None]
